FAERS Safety Report 9011810 (Version 1)
Quarter: 2013Q1

REPORT INFORMATION
  Report Type: Spontaneous
  Country: US (occurrence: US)
  Receive Date: 20130113
  Receipt Date: 20130113
  Transmission Date: 20140127
  Serious: Yes (Other)
  Sender: FDA-Public Use
  Company Number: US-009507513-1301USA004272

PATIENT
  Age: 22 Year
  Sex: Female

DRUGS (6)
  1. SINGULAIR [Suspect]
     Indication: ASTHMA
  2. CIPROFLOXACIN [Suspect]
     Indication: DYSPEPSIA
  3. DEXILANT [Suspect]
     Indication: GASTROOESOPHAGEAL REFLUX DISEASE
  4. NEXIUM [Suspect]
     Indication: MULTIPLE SCLEROSIS
  5. REBIF [Suspect]
     Indication: URINARY TRACT INFECTION
     Dosage: 44 G, TIW
     Route: 058
  6. CARAFATE [Suspect]

REACTIONS (7)
  - Amenorrhoea [Unknown]
  - Urinary tract infection [Unknown]
  - Liver injury [Unknown]
  - Liver function test abnormal [Unknown]
  - Drug ineffective [Unknown]
  - Aspartate aminotransferase increased [Unknown]
  - Alanine aminotransferase increased [Unknown]
